FAERS Safety Report 5754705-0 (Version None)
Quarter: 2008Q2

REPORT INFORMATION
  Report Type: 
  Country: None (occurrence: None)
  Receive Date: 20080527
  Receipt Date: 20080506
  Transmission Date: 20081010
  Serious: Yes (Hospitalization)
  Sender: FDA-Public Use
  Company Number: 2008AL003561

PATIENT
  Age: 78 Year
  Sex: Female
  Weight: 68.0396 kg

DRUGS (3)
  1. DIGOXIN [Suspect]
     Indication: HEART RATE INCREASED
     Dosage: 0.25MG DAILY PO
     Route: 048
     Dates: start: 20070101, end: 20080507
  2. GLUCOPHAGE [Concomitant]
  3. GLYCERIDE [Concomitant]

REACTIONS (9)
  - ASTHENIA [None]
  - BLOOD COUNT ABNORMAL [None]
  - FALL [None]
  - FATIGUE [None]
  - HAEMORRHAGE [None]
  - JOINT INJURY [None]
  - OVERDOSE [None]
  - PLASMA VISCOSITY DECREASED [None]
  - RENAL FUNCTION TEST ABNORMAL [None]
